FAERS Safety Report 4663877-0 (Version None)
Quarter: 2005Q2

REPORT INFORMATION
  Report Type: 
  Country: None (occurrence: None)
  Receive Date: 20050516
  Receipt Date: 20050502
  Transmission Date: 20051028
  Serious: Yes (Hospitalization)
  Sender: FDA-Public Use
  Company Number: 2005046561

PATIENT
  Age: 63 Year
  Sex: Female

DRUGS (9)
  1. XANAX [Suspect]
     Indication: ILL-DEFINED DISORDER
  2. SINEQUAN [Suspect]
     Indication: ILL-DEFINED DISORDER
  3. THALIDOMIDE (THALIDOMIDE) [Suspect]
     Indication: HYPERGAMMAGLOBULINAEMIA BENIGN MONOCLONAL
     Dosage: 200 MG (1 IN 1 D), ORAL
     Route: 048
     Dates: start: 20040730
  4. THALIDOMIDE (THALIDOMIDE) [Suspect]
     Indication: HYPERGAMMAGLOBULINAEMIA BENIGN MONOCLONAL
     Dosage: 200 MG (1 IN 1 D), ORAL
     Route: 048
     Dates: start: 20050120
  5. ZOLPIDEM TARTRATE [Suspect]
     Indication: ILL-DEFINED DISORDER
  6. CLOPIDOGREL BISULFATE [Suspect]
     Indication: ILL-DEFINED DISORDER
  7. ANTIHYPERTENSIVE (ANTIHYPERTENSIVES) [Suspect]
     Indication: HYPERTENSION
  8. PANTOPRAZOLE SODIUM [Concomitant]
  9. LORAZEPAM [Concomitant]

REACTIONS (4)
  - FATIGUE [None]
  - HYPOTENSION [None]
  - INSOMNIA [None]
  - LOSS OF CONSCIOUSNESS [None]
